FAERS Safety Report 9794485 (Version 1)
Quarter: 2014Q1

REPORT INFORMATION
  Report Type: Spontaneous
  Country: US (occurrence: US)
  Receive Date: 20140102
  Receipt Date: 20140102
  Transmission Date: 20141002
  Serious: No
  Sender: FDA-Public Use
  Company Number: US-AMGEN-USASP2013090950

PATIENT
  Age: 70 Year
  Sex: Female

DRUGS (2)
  1. ENBREL [Suspect]
     Indication: RHEUMATOID ARTHRITIS
     Dosage: 50 MG, ONCE WEEKLY
     Route: 065
     Dates: start: 20121215
  2. LEFLUNOMIDE [Concomitant]
     Dosage: UNK, UNK, FOR 8 TO 9 MONTHS

REACTIONS (4)
  - C-reactive protein increased [Recovered/Resolved]
  - Rheumatoid arthritis [Unknown]
  - Vasculitis [Not Recovered/Not Resolved]
  - Injection site pain [Not Recovered/Not Resolved]
